FAERS Safety Report 24070351 (Version 1)
Quarter: 2024Q3

REPORT INFORMATION
  Report Type: Report from Study
  Country: MX (occurrence: MX)
  Receive Date: 20240710
  Receipt Date: 20240710
  Transmission Date: 20241016
  Serious: No
  Sender: ROCHE
  Company Number: MX-ROCHE-3413364

PATIENT
  Sex: Male
  Weight: 56.0 kg

DRUGS (4)
  1. ALECENSA [Suspect]
     Active Substance: ALECTINIB HYDROCHLORIDE
     Indication: Lung neoplasm malignant
     Route: 048
     Dates: start: 20221118
  2. ALECENSA [Suspect]
     Active Substance: ALECTINIB HYDROCHLORIDE
     Dosage: TAKE 3 CAPSULES, FREQUENCY WAS NOT REPORTED
     Route: 048
     Dates: start: 202306
  3. ALECENSA [Suspect]
     Active Substance: ALECTINIB HYDROCHLORIDE
     Dosage: TAKE 2 CAPSULES, FREQUENCY WAS NOT REPORTED
     Route: 048
     Dates: start: 202307
  4. ALECENSA [Suspect]
     Active Substance: ALECTINIB HYDROCHLORIDE
     Dosage: TAKE 4 CAPSULES ORALLY FOR A MONTH
     Route: 048
     Dates: start: 20230712

REACTIONS (4)
  - Blood creatinine increased [Unknown]
  - Renal disorder [Unknown]
  - Blood creatinine decreased [Unknown]
  - Product prescribing issue [Unknown]
